FAERS Safety Report 21607680 (Version 1)
Quarter: 2022Q4

REPORT INFORMATION
  Report Type: Spontaneous
  Country: US (occurrence: US)
  Receive Date: 20221117
  Receipt Date: 20221117
  Transmission Date: 20230113
  Serious: No
  Sender: FDA-Public Use
  Company Number: US-ANTARES PHARMA, INC.-2022-SPO-TX-0605

PATIENT

DRUGS (2)
  1. XYOSTED [Suspect]
     Active Substance: TESTOSTERONE ENANTHATE
     Indication: Blood testosterone free decreased
     Dosage: 75 MG/0.5ML, UNKNOWN
     Route: 058
  2. XYOSTED [Suspect]
     Active Substance: TESTOSTERONE ENANTHATE
     Indication: Depression
     Dosage: 50 MG/0.5ML, UNKNOWN
     Route: 058

REACTIONS (4)
  - Testicular atrophy [Not Recovered/Not Resolved]
  - Haematocrit increased [Unknown]
  - Erectile dysfunction [Not Recovered/Not Resolved]
  - Pollakiuria [Not Recovered/Not Resolved]
